FAERS Safety Report 17375421 (Version 3)
Quarter: 2022Q3

REPORT INFORMATION
  Report Type: Spontaneous
  Country: US (occurrence: None)
  Receive Date: 20200206
  Receipt Date: 20220929
  Transmission Date: 20221027
  Serious: Yes (Other)
  Sender: FDA-Public Use
  Company Number: 2020SE14950

PATIENT
  Age: 26345 Day
  Sex: Male
  Weight: 106.6 kg

DRUGS (88)
  1. NEXIUM [Suspect]
     Active Substance: ESOMEPRAZOLE MAGNESIUM
     Indication: Gastrooesophageal reflux disease
     Route: 048
     Dates: start: 2003, end: 2019
  2. NEXIUM [Suspect]
     Active Substance: ESOMEPRAZOLE MAGNESIUM
     Indication: Gastrooesophageal reflux disease
     Dosage: 40 MG
     Route: 048
     Dates: start: 2003, end: 2004
  3. NEXIUM [Suspect]
     Active Substance: ESOMEPRAZOLE MAGNESIUM
     Indication: Gastrooesophageal reflux disease
     Dosage: 40 MG
     Route: 048
     Dates: start: 2018, end: 2019
  4. NEXIUM [Suspect]
     Active Substance: ESOMEPRAZOLE MAGNESIUM
     Indication: Gastrooesophageal reflux disease
     Dosage: 20 MG
     Route: 048
     Dates: start: 20180515
  5. NEXIUM [Suspect]
     Active Substance: ESOMEPRAZOLE MAGNESIUM
     Indication: Gastrooesophageal reflux disease
     Dosage: GENERIC, 40 MG
     Route: 065
     Dates: start: 20180829
  6. PRILOSEC [Suspect]
     Active Substance: OMEPRAZOLE MAGNESIUM
     Indication: Gastrooesophageal reflux disease
     Route: 048
     Dates: start: 2003, end: 2019
  7. PRILOSEC [Suspect]
     Active Substance: OMEPRAZOLE MAGNESIUM
     Indication: Gastrooesophageal reflux disease
     Dosage: 20 MG
     Route: 048
     Dates: start: 2012
  8. PRILOSEC [Suspect]
     Active Substance: OMEPRAZOLE MAGNESIUM
     Indication: Gastrooesophageal reflux disease
     Dosage: GENERIC
     Route: 065
     Dates: start: 2004, end: 2018
  9. DEXILANT [Suspect]
     Active Substance: DEXLANSOPRAZOLE
     Indication: Gastrooesophageal reflux disease
     Route: 065
     Dates: start: 2003, end: 2019
  10. DEXILANT [Suspect]
     Active Substance: DEXLANSOPRAZOLE
     Indication: Gastrooesophageal reflux disease
     Dosage: 30 MG
     Route: 065
     Dates: start: 2011
  11. PROTONIX [Suspect]
     Active Substance: PANTOPRAZOLE SODIUM
     Indication: Gastrooesophageal reflux disease
     Route: 065
     Dates: start: 2003, end: 2019
  12. PROTONIX [Suspect]
     Active Substance: PANTOPRAZOLE SODIUM
     Indication: Gastrooesophageal reflux disease
     Route: 065
     Dates: start: 2004
  13. HYDROCODONE [Concomitant]
     Active Substance: HYDROCODONE
     Indication: Pain
     Dates: start: 2004
  14. HYDROCODONE [Concomitant]
     Active Substance: HYDROCODONE
     Indication: Pain
     Dates: start: 2013
  15. CIPROFLOXACIN [Concomitant]
     Active Substance: CIPROFLOXACIN
     Indication: Infection
     Dates: start: 2005, end: 2011
  16. TERAZOSIN [Concomitant]
     Active Substance: TERAZOSIN HYDROCHLORIDE
     Indication: Hypertension
     Dates: start: 2019
  17. SUCRALFATE [Concomitant]
     Active Substance: SUCRALFATE
     Indication: Ulcer
     Dates: start: 2019
  18. FAMOTIDINE [Concomitant]
     Active Substance: FAMOTIDINE
     Dates: start: 2018, end: 2019
  19. FAMOTIDINE [Concomitant]
     Active Substance: FAMOTIDINE
     Dates: start: 202201, end: 202207
  20. NIZATIDINE [Concomitant]
     Active Substance: NIZATIDINE
  21. RANITIDINE [Concomitant]
     Active Substance: RANITIDINE
     Dates: start: 2000, end: 2003
  22. RANITIDINE [Concomitant]
     Active Substance: RANITIDINE
     Dates: start: 2008, end: 2009
  23. RANITIDINE [Concomitant]
     Active Substance: RANITIDINE
     Dates: start: 2018, end: 2019
  24. RANITIDINE [Concomitant]
     Active Substance: RANITIDINE
     Dates: start: 1998
  25. TUMS [Concomitant]
     Active Substance: CALCIUM CARBONATE
  26. ROLAIDS [Concomitant]
     Active Substance: CALCIUM CARBONATE\MAGNESIUM HYDROXIDE
  27. AMLODIPINE BESYLATE [Concomitant]
     Active Substance: AMLODIPINE BESYLATE
  28. ASPIRIN [Concomitant]
     Active Substance: ASPIRIN
  29. IRON [Concomitant]
     Active Substance: IRON
  30. LITHIUM CARBONATE [Concomitant]
     Active Substance: LITHIUM CARBONATE
     Indication: Supplementation therapy
  31. MULTI-VITAMINS [Concomitant]
  32. TRIAMTERENE [Concomitant]
     Active Substance: TRIAMTERENE
  33. NIFEDIPINE [Concomitant]
     Active Substance: NIFEDIPINE
  34. CYANOCOBALAMIN [Concomitant]
     Active Substance: CYANOCOBALAMIN
  35. LOVASTATIN [Concomitant]
     Active Substance: LOVASTATIN
  36. POTASSIUM CHLORIDE [Concomitant]
     Active Substance: POTASSIUM CHLORIDE
  37. MENTHOL [Concomitant]
     Active Substance: MENTHOL
  38. ERTAPENEM [Concomitant]
     Active Substance: ERTAPENEM
  39. SODIUM FLUORIDE [Concomitant]
     Active Substance: SODIUM FLUORIDE
  40. CHLORHEXIDINE GLUCONATE [Concomitant]
     Active Substance: CHLORHEXIDINE GLUCONATE
  41. TRIAMCINOLONE [Concomitant]
     Active Substance: TRIAMCINOLONE
  42. LOSARTAN [Concomitant]
     Active Substance: LOSARTAN
  43. BUPIVACINE HYDROCHLORIDE [Concomitant]
  44. CARBOXYPOLYMETHYLENE\HYALURONATE SODIUM [Concomitant]
     Active Substance: CARBOXYPOLYMETHYLENE\HYALURONATE SODIUM
  45. HYDROCHLOROTHIAZIDE [Concomitant]
     Active Substance: HYDROCHLOROTHIAZIDE
  46. ZZGATIFLOXACIN [Concomitant]
  47. ALIGN [Concomitant]
     Active Substance: BIFIDOBACTERIUM LONGUM SUBSP. INFANTIS
  48. VERAPAMIL [Concomitant]
     Active Substance: VERAPAMIL HYDROCHLORIDE
  49. AMILORIDE [Concomitant]
     Active Substance: AMILORIDE
     Indication: Renal disorder
     Dates: start: 2020
  50. BENADRYL [Concomitant]
     Active Substance: DIPHENHYDRAMINE HYDROCHLORIDE
  51. ZOFRAN [Concomitant]
     Active Substance: ONDANSETRON HYDROCHLORIDE
  52. VIAGRA [Concomitant]
     Active Substance: SILDENAFIL CITRATE
  53. LEVAQUIN [Concomitant]
     Active Substance: LEVOFLOXACIN
  54. HISTINEX [Concomitant]
  55. TOBRADEX [Concomitant]
     Active Substance: DEXAMETHASONE\TOBRAMYCIN
  56. LISINOPRIL [Concomitant]
     Active Substance: LISINOPRIL
  57. AZITHROMYCIN [Concomitant]
     Active Substance: AZITHROMYCIN
  58. CRESTOR [Concomitant]
     Active Substance: ROSUVASTATIN CALCIUM
     Indication: Blood cholesterol increased
     Dates: start: 2014
  59. NITROSTAT [Concomitant]
     Active Substance: NITROGLYCERIN
  60. METHYLPREDNISOLONE [Concomitant]
     Active Substance: METHYLPREDNISOLONE
  61. DICLOFENAC [Concomitant]
     Active Substance: DICLOFENAC
  62. OSELTAMIVIR [Concomitant]
     Active Substance: OSELTAMIVIR
  63. DOCUSATE SODIUM [Concomitant]
     Active Substance: DOCUSATE SODIUM
  64. LEVOFLOXACIN [Concomitant]
     Active Substance: LEVOFLOXACIN
  65. PROBIOTICS NOS [Concomitant]
     Active Substance: PROBIOTICS NOS
     Indication: Gastrointestinal disorder
  66. PRASUGREL [Concomitant]
     Active Substance: PRASUGREL
     Indication: Cardiac disorder
     Dates: start: 2020
  67. OLMESARTAN [Concomitant]
     Active Substance: OLMESARTAN
     Indication: Hypertension
     Dates: start: 2022
  68. ALBUTEROL [Concomitant]
     Active Substance: ALBUTEROL
     Indication: Inhalation therapy
     Dates: start: 2022
  69. GAVISCON [Concomitant]
     Active Substance: ALUMINUM HYDROXIDE\MAGNESIUM CARBONATE
  70. ISOSORBIDE [Concomitant]
     Active Substance: ISOSORBIDE
  71. POTASSIUM CHLORIDE [Concomitant]
     Active Substance: POTASSIUM CHLORIDE
  72. ZOSTER [Concomitant]
  73. SIMVASTATIN [Concomitant]
     Active Substance: SIMVASTATIN
  74. MIRTAZAPINE [Concomitant]
     Active Substance: MIRTAZAPINE
  75. CETIRIZINE HYDROCHLORIDE [Concomitant]
     Active Substance: CETIRIZINE HYDROCHLORIDE
  76. METHYLCELLULOSES [Concomitant]
     Active Substance: METHYLCELLULOSES
  77. FLUNISOLIDE [Concomitant]
     Active Substance: FLUNISOLIDE
  78. LORATADINE [Concomitant]
     Active Substance: LORATADINE
  79. CAPSAICIN [Concomitant]
     Active Substance: CAPSAICIN
  80. ATENOLOL [Concomitant]
     Active Substance: ATENOLOL
  81. ACETAMINOPHEN [Concomitant]
     Active Substance: ACETAMINOPHEN
  82. CLONOPIN [Concomitant]
     Active Substance: CLONAZEPAM
  83. AMOXICILLIN [Concomitant]
     Active Substance: AMOXICILLIN
  84. PROMETHAZINE [Concomitant]
     Active Substance: PROMETHAZINE HYDROCHLORIDE
  85. CEFAZOLIN [Concomitant]
     Active Substance: CEFAZOLIN
  86. MORPHINE [Concomitant]
     Active Substance: MORPHINE
  87. ENOXAPARIN [Concomitant]
     Active Substance: ENOXAPARIN
  88. TEMAZEPAM [Concomitant]
     Active Substance: TEMAZEPAM

REACTIONS (3)
  - Chronic kidney disease [Not Recovered/Not Resolved]
  - Renal failure [Unknown]
  - Hyperparathyroidism secondary [Unknown]

NARRATIVE: CASE EVENT DATE: 20180829
